FAERS Safety Report 4407368-0 (Version None)
Quarter: 2004Q3

REPORT INFORMATION
  Report Type: 
  Country: None (occurrence: None)
  Receive Date: 20040721
  Receipt Date: 20040701
  Transmission Date: 20050211
  Serious: Yes (Hospitalization, Other)
  Sender: FDA-Public Use
  Company Number: USA040362347

PATIENT
  Age: 74 Year
  Sex: Female

DRUGS (11)
  1. FORTEO [Suspect]
     Indication: OSTEOPOROSIS
     Dosage: 20 UG DAY
     Dates: start: 20030101
  2. NEXIUM [Concomitant]
  3. INDERAL [Concomitant]
  4. COZAAR [Concomitant]
  5. CLONIDINE HCL [Concomitant]
  6. LOTREL [Concomitant]
  7. PLAVIX [Concomitant]
  8. CORTEF [Concomitant]
  9. XALATAN [Concomitant]
  10. VICODIN [Concomitant]
  11. COSPOT [Concomitant]

REACTIONS (4)
  - CHOLECYSTITIS [None]
  - CHOLELITHIASIS [None]
  - PANCREATITIS ACUTE [None]
  - PHARMACEUTICAL PRODUCT COMPLAINT [None]
